FAERS Safety Report 10882839 (Version 1)
Quarter: 2015Q1

REPORT INFORMATION
  Report Type: Spontaneous
  Country: US (occurrence: US)
  Receive Date: 20150303
  Receipt Date: 20150303
  Transmission Date: 20150721
  Serious: No
  Sender: FDA-Public Use
  Company Number: US-PFIZER INC-2015072300

PATIENT
  Sex: Female
  Weight: 65 kg

DRUGS (2)
  1. TIKOSYN [Suspect]
     Active Substance: DOFETILIDE
     Indication: SUPRAVENTRICULAR TACHYCARDIA
     Dosage: 125 ?G, 2X/DAY
     Dates: start: 2008
  2. TOVIAZ [Interacting]
     Active Substance: FESOTERODINE FUMARATE
     Indication: HYPERTONIC BLADDER
     Dosage: UNK
     Dates: start: 201309, end: 201310

REACTIONS (4)
  - Tachyarrhythmia [Recovered/Resolved]
  - Tachyarrhythmia [Recovered/Resolved]
  - Drug interaction [Recovered/Resolved]
  - Malaise [Unknown]

NARRATIVE: CASE EVENT DATE: 201309
